FAERS Safety Report 6490072-5 (Version None)
Quarter: 2009Q4

REPORT INFORMATION
  Report Type: 
  Country: None (occurrence: None)
  Receive Date: 20091211
  Receipt Date: 20081209
  Transmission Date: 20100525
  Serious: No
  Sender: FDA-Public Use
  Company Number: A0759855A

PATIENT
  Age: 54 Year
  Sex: Female

DRUGS (4)
  1. FLONASE [Suspect]
     Indication: SINUS DISORDER
     Route: 045
  2. ASTELIN [Suspect]
     Indication: SINUS DISORDER
     Route: 045
  3. FORTICAL [Suspect]
     Indication: OSTEOPOROSIS
     Dosage: 200IU PER DAY
     Route: 045
     Dates: start: 20080401
  4. ALEVE [Concomitant]

REACTIONS (5)
  - DRY EYE [None]
  - HEADACHE [None]
  - PARAESTHESIA [None]
  - VISION BLURRED [None]
  - VITREOUS FLOATERS [None]
